FAERS Safety Report 6379232-1 (Version None)
Quarter: 2009Q3

REPORT INFORMATION
  Report Type: 
  Country: None (occurrence: None)
  Receive Date: 20090923
  Receipt Date: 20090910
  Transmission Date: 20100115
  Serious: Yes (Hospitalization)
  Sender: FDA-Public Use
  Company Number: 2008AL008831

PATIENT
  Age: 44 Year
  Sex: Male
  Weight: 96.6162 kg

DRUGS (44)
  1. DIGOXIN [Suspect]
     Dosage: 0.125MG, DAILY, PO
     Route: 048
  2. SYNTHROID [Concomitant]
  3. LOVAZA [Concomitant]
  4. CIALIS [Concomitant]
  5. CRESTOR [Concomitant]
  6. GLYBURIDE [Concomitant]
  7. JANUMET [Concomitant]
  8. COREG [Concomitant]
  9. VITAMIN D [Concomitant]
  10. LESCOL [Concomitant]
  11. LEVITRA [Concomitant]
  12. LASIX [Concomitant]
  13. SPIRONOLACTONE [Concomitant]
  14. ZESTRIL [Concomitant]
  15. ERGOCALCIFEROL [Concomitant]
  16. GLIMEPIRIDE [Concomitant]
  17. POTASSIUM CHLORIDE [Concomitant]
  18. GLUCOPHAGE [Concomitant]
  19. TOPROL-XL [Concomitant]
  20. LISINOPRIL [Concomitant]
  21. LIPITOR [Concomitant]
  22. FUROSEMIDE [Concomitant]
  23. AMARYL [Concomitant]
  24. ADVAIR DISKUS 100/50 [Concomitant]
  25. METFORMIN [Concomitant]
  26. GLYBURIDE [Concomitant]
  27. METHYLPRED [Concomitant]
  28. AVELOX [Concomitant]
  29. TUSSIONEX [Concomitant]
  30. NIASPAN [Concomitant]
  31. AMOXICILLIN [Concomitant]
  32. LEVOTHROID [Concomitant]
  33. TESTIM [Concomitant]
  34. ANDRODERM [Concomitant]
  35. FLUZONE [Concomitant]
  36. BENZONATATE [Concomitant]
  37. ATROVENT [Concomitant]
  38. VIAGRA [Concomitant]
  39. JANUVIA [Concomitant]
  40. VYTORIN [Concomitant]
  41. PROPO-N/APAP [Concomitant]
  42. AZITHROMYCIN [Concomitant]
  43. CIALIS [Concomitant]
  44. NAPROXEN [Concomitant]

REACTIONS (14)
  - ATRIOVENTRICULAR BLOCK COMPLETE [None]
  - BRADYCARDIA [None]
  - CARDIAC FAILURE CONGESTIVE [None]
  - CARDIOMYOPATHY [None]
  - DIABETES MELLITUS INADEQUATE CONTROL [None]
  - ERECTILE DYSFUNCTION [None]
  - EXFOLIATIVE RASH [None]
  - HEPATIC CONGESTION [None]
  - HYPERTENSION [None]
  - HYPOGLYCAEMIA [None]
  - LOSS OF CONSCIOUSNESS [None]
  - MOBILITY DECREASED [None]
  - MULTIPLE INJURIES [None]
  - PULMONARY HYPERTENSION [None]
